FAERS Safety Report 16177682 (Version 2)
Quarter: 2019Q2

REPORT INFORMATION
  Report Type: Spontaneous
  Country: CN (occurrence: CN)
  Receive Date: 20190410
  Receipt Date: 20190510
  Transmission Date: 20190711
  Serious: No
  Sender: FDA-Public Use
  Company Number: CN-ROCHE-2283209

PATIENT
  Age: 62 Year
  Sex: Female

DRUGS (10)
  1. XELODA [Suspect]
     Active Substance: CAPECITABINE
     Indication: METASTASES TO LIVER
  2. OXALIPLATIN. [Suspect]
     Active Substance: OXALIPLATIN
     Indication: COLON CANCER
     Dosage: DAY1; PER 3WEEKS
     Route: 041
     Dates: start: 20170722
  3. OXALIPLATIN. [Suspect]
     Active Substance: OXALIPLATIN
     Indication: ASCITES
  4. CALCIUM FOLINATE [Concomitant]
     Active Substance: LEUCOVORIN CALCIUM
     Indication: COLON CANCER
     Route: 065
     Dates: start: 20170608, end: 20170701
  5. CALCIUM FOLINATE [Concomitant]
     Active Substance: LEUCOVORIN CALCIUM
     Indication: METASTASES TO LIVER
  6. XELODA [Suspect]
     Active Substance: CAPECITABINE
     Indication: ASCITES
     Dosage: DAY1 TO 14; PER 3WEEKS
     Route: 048
     Dates: start: 20171009
  7. CALCIUM FOLINATE [Concomitant]
     Active Substance: LEUCOVORIN CALCIUM
     Indication: ASCITES
  8. FLUOROURACIL. [Concomitant]
     Active Substance: FLUOROURACIL
     Dosage: CONTINUOUS ADMINISTRATION FOR 46HOURS
     Route: 065
     Dates: start: 20170608, end: 20170701
  9. XELODA [Suspect]
     Active Substance: CAPECITABINE
     Indication: COLON CANCER
     Dosage: DAY1 TO 14; PER 3WEEKS
     Route: 048
     Dates: start: 20170722
  10. OXALIPLATIN. [Suspect]
     Active Substance: OXALIPLATIN
     Indication: METASTASES TO LIVER
     Route: 041
     Dates: start: 20170608, end: 20170701

REACTIONS (1)
  - Neurotoxicity [Unknown]
